FAERS Safety Report 4856131-5 (Version None)
Quarter: 2005Q4

REPORT INFORMATION
  Report Type: 
  Country: None (occurrence: None)
  Receive Date: 20051216
  Receipt Date: 20051206
  Transmission Date: 20060501
  Serious: Yes (Other)
  Sender: FDA-Public Use
  Company Number: JP-MERCK-0512USA01730

PATIENT
  Age: 41 Year
  Sex: Male

DRUGS (2)
  1. PRIMAXIN [Suspect]
     Indication: INFECTION
     Route: 042
     Dates: start: 20051206, end: 20051206
  2. VALPROATE SODIUM [Suspect]
     Route: 048

REACTIONS (2)
  - CONVULSION [None]
  - DRUG INTERACTION [None]
